FAERS Safety Report 17738918 (Version 1)
Quarter: 2020Q2

REPORT INFORMATION
  Report Type: Spontaneous
  Country: US (occurrence: US)
  Receive Date: 20200504
  Receipt Date: 20200504
  Transmission Date: 20200714
  Serious: No
  Sender: FDA-Public Use
  Company Number: US-GALDERMA-US2020012042

PATIENT
  Age: 30 Year
  Sex: Female

DRUGS (8)
  1. PROACTIV MD DAILY OIL CONTROL SPF 30 [Suspect]
     Active Substance: AVOBENZONE\OCTISALATE\OCTOCRYLENE
     Indication: ACNE
     Route: 061
     Dates: start: 20190510, end: 201912
  2. PROACTIV MD ADAPALENE ACNE TREATMENT [Suspect]
     Active Substance: ADAPALENE
     Indication: ACNE
     Dosage: 0.1%
     Route: 061
     Dates: start: 20190510, end: 201912
  3. PROACTIV MD DEEP CLEANSING FACE WASH [Concomitant]
     Active Substance: COSMETICS
     Indication: SKIN HYPERPIGMENTATION
  4. PROACTIV GREEN TEA MOISTURIZER [Concomitant]
     Active Substance: COSMETICS
     Indication: ACNE
     Route: 061
     Dates: start: 20190510, end: 201912
  5. PROACTIV MD ADAPALENE ACNE TREATMENT [Suspect]
     Active Substance: ADAPALENE
     Indication: SKIN HYPERPIGMENTATION
  6. PROACTIV MD DAILY OIL CONTROL SPF 30 [Suspect]
     Active Substance: AVOBENZONE\OCTISALATE\OCTOCRYLENE
     Indication: SKIN HYPERPIGMENTATION
  7. PROACTIV MD DEEP CLEANSING FACE WASH [Concomitant]
     Active Substance: COSMETICS
     Indication: ACNE
     Route: 061
     Dates: start: 20190510, end: 201912
  8. PROACTIV GREEN TEA MOISTURIZER [Concomitant]
     Active Substance: COSMETICS
     Indication: SKIN HYPERPIGMENTATION

REACTIONS (3)
  - Dry skin [Recovering/Resolving]
  - Inappropriate schedule of product administration [Recovering/Resolving]
  - Underdose [Recovering/Resolving]

NARRATIVE: CASE EVENT DATE: 20190510
